FAERS Safety Report 8418613-9 (Version None)
Quarter: 2012Q2

REPORT INFORMATION
  Report Type: 
  Country: None (occurrence: None)
  Receive Date: 20120607
  Receipt Date: 20120530
  Transmission Date: 20120825
  Serious: Yes (Other)
  Sender: FDA-Public Use
  Company Number: GB-UCBSA-057328

PATIENT
  Age: 30 Year
  Sex: Female

DRUGS (6)
  1. CIMZIA [Suspect]
     Indication: RHEUMATOID ARTHRITIS
     Dosage: 2/52
     Route: 058
     Dates: start: 20120201, end: 20120501
  2. AZULFIDINE [Suspect]
     Route: 048
  3. PREDNISOLONE [Concomitant]
     Route: 048
  4. DICLOFENAC SODIUM [Concomitant]
     Route: 048
  5. METHOTREXATE [Suspect]
     Route: 058
  6. FOLIC ACID [Concomitant]

REACTIONS (1)
  - CELLULITIS [None]
